FAERS Safety Report 7916259-X (Version None)
Quarter: 2011Q4

REPORT INFORMATION
  Report Type: 
  Country: None (occurrence: None)
  Receive Date: 20111116
  Receipt Date: 20111107
  Transmission Date: 20120403
  Serious: No
  Sender: FDA-Public Use
  Company Number: US-BIOGENIDEC-2011BI042525

PATIENT
  Sex: Female

DRUGS (2)
  1. TYSABRI [Suspect]
     Indication: MULTIPLE SCLEROSIS
     Route: 042
     Dates: start: 20070823
  2. TYSABRI [Suspect]
     Route: 042

REACTIONS (4)
  - FATIGUE [None]
  - HEADACHE [None]
  - VISION BLURRED [None]
  - DEPRESSION [None]
